FAERS Safety Report 18502453 (Version 2)
Quarter: 2020Q4

REPORT INFORMATION
  Report Type: Spontaneous
  Country: JP (occurrence: JP)
  Receive Date: 20201113
  Receipt Date: 20201124
  Transmission Date: 20210114
  Serious: Yes (Death, Other)
  Sender: FDA-Public Use
  Company Number: JP-BRISTOL-MYERS SQUIBB COMPANY-BMS-2020-095325

PATIENT
  Age: 89 Year

DRUGS (2)
  1. OPDIVO [Suspect]
     Active Substance: NIVOLUMAB
     Indication: RENAL CELL CARCINOMA
     Dosage: UNK, ONE TIME DOSE
     Route: 041
     Dates: start: 20201105
  2. YERVOY [Suspect]
     Active Substance: IPILIMUMAB
     Indication: RENAL CELL CARCINOMA
     Dosage: UNK
     Route: 041
     Dates: start: 20201105

REACTIONS (3)
  - Pain [Unknown]
  - Pyrexia [Unknown]
  - Tumour embolism [Fatal]

NARRATIVE: CASE EVENT DATE: 20201105
